FAERS Safety Report 8082448-X (Version None)
Quarter: 2012Q1

REPORT INFORMATION
  Report Type: 
  Country: None (occurrence: None)
  Receive Date: 20120127
  Receipt Date: 20110221
  Transmission Date: 20120608
  Serious: No
  Sender: FDA-Public Use
  Company Number: US-ABBOTT-11P-163-0706431-00

PATIENT
  Weight: 110.32 kg

DRUGS (12)
  1. ARAVA [Concomitant]
     Indication: RHEUMATOID ARTHRITIS
     Route: 048
  2. ZOLOFT [Concomitant]
     Indication: FEELING OF RELAXATION
  3. IMURAN [Concomitant]
     Indication: RHEUMATOID ARTHRITIS
     Dosage: BID
     Route: 048
  4. TRAMADOL HCL [Concomitant]
     Indication: PAIN MANAGEMENT
     Route: 048
  5. VITAMIN B-12 [Concomitant]
     Indication: VITAMIN SUPPLEMENTATION
     Route: 048
  6. ASCORBIC ACID [Concomitant]
     Indication: VITAMIN SUPPLEMENTATION
     Route: 048
  7. HUMIRA [Suspect]
     Indication: RHEUMATOID ARTHRITIS
     Dosage: X3 MOS
     Route: 058
     Dates: start: 20101101
  8. FOLIC ACID [Concomitant]
     Indication: VITAMIN SUPPLEMENTATION
     Route: 048
  9. VITAMIN D [Concomitant]
     Indication: VITAMIN SUPPLEMENTATION
     Route: 048
  10. ZOLOFT [Concomitant]
     Indication: INSOMNIA
     Route: 048
  11. ZOLOFT [Concomitant]
     Indication: PAIN MANAGEMENT
  12. CENTRUM [Concomitant]
     Indication: VITAMIN SUPPLEMENTATION
     Dosage: 1 IN 1 DAY; QD
     Route: 048

REACTIONS (6)
  - ARTHRITIS [None]
  - ARTHRALGIA [None]
  - MENSTRUATION IRREGULAR [None]
  - DRUG INEFFECTIVE [None]
  - PYREXIA [None]
  - FATIGUE [None]
